FAERS Safety Report 5872019-5 (Version None)
Quarter: 2008Q3

REPORT INFORMATION
  Report Type: 
  Country: None (occurrence: None)
  Receive Date: 20080904
  Receipt Date: 20080904
  Transmission Date: 20090109
  Serious: Yes (Hospitalization)
  Sender: FDA-Public Use
  Company Number: None

PATIENT
  Age: 48 Year
  Sex: Male
  Weight: 87.2 kg

DRUGS (2)
  1. OXALIPLATIN C1+2 (70MG/M2) C3+4 (50MG/M2) [Suspect]
     Indication: OESOPHAGEAL CARCINOMA
     Dosage: WEEKLY IV
     Route: 042
     Dates: start: 20080825
  2. CAPECITABINE C1+2 (200MG/M2) C3+4 (1650MG/M2) [Suspect]
     Indication: OESOPHAGEAL CARCINOMA
     Dosage: EVERY DAY PO
     Route: 048
     Dates: start: 20080827

REACTIONS (7)
  - ASCITES [None]
  - HEPATIC FUNCTION ABNORMAL [None]
  - MOBILITY DECREASED [None]
  - PERICARDIAL EFFUSION [None]
  - PLEURAL EFFUSION [None]
  - PYREXIA [None]
  - TRANSAMINASES INCREASED [None]
